FAERS Safety Report 7605604-0 (Version None)
Quarter: 2011Q3

REPORT INFORMATION
  Report Type: 
  Country: None (occurrence: None)
  Receive Date: 20110713
  Receipt Date: 20110629
  Transmission Date: 20111222
  Serious: Yes (Other)
  Sender: FDA-Public Use
  Company Number: CA-JNJFOC-20110701303

PATIENT
  Sex: Female
  Weight: 59.42 kg

DRUGS (1)
  1. REMICADE [Suspect]
     Indication: CROHN'S DISEASE
     Dosage: DOSE STRENGTH - 10 MG/ML  THERAPY DURATION: 1230 TO 1445
     Route: 042
     Dates: start: 20110629

REACTIONS (4)
  - ABDOMINAL PAIN UPPER [None]
  - HYPOTENSION [None]
  - TACHYPNOEA [None]
  - INFUSION RELATED REACTION [None]
